FAERS Safety Report 18378610 (Version 2)
Quarter: 2020Q4

REPORT INFORMATION
  Report Type: Report from Study
  Country: GB (occurrence: GB)
  Receive Date: 20201013
  Receipt Date: 20201026
  Transmission Date: 20210114
  Serious: Yes (Hospitalization)
  Sender: FDA-Public Use
  Company Number: GB-PFIZER INC-2020388978

PATIENT

DRUGS (52)
  1. VINCRISTINE SULFATE. [Suspect]
     Active Substance: VINCRISTINE SULFATE
     Dosage: R-CHOP CYCLE 4
     Dates: start: 20180418
  2. CYCLOPHOSPHAMIDE. [Suspect]
     Active Substance: CYCLOPHOSPHAMIDE
     Dosage: R-CHOP CYCLE 2
     Dates: start: 20180307
  3. CYCLOPHOSPHAMIDE. [Suspect]
     Active Substance: CYCLOPHOSPHAMIDE
     Dosage: R-CHOP CYCLE 5
     Dates: start: 20180509
  4. PREDNISONE. [Suspect]
     Active Substance: PREDNISONE
     Dosage: R-CHOP  STARTED (CYCLE 1)
     Dates: start: 20180215
  5. PREDNISONE. [Suspect]
     Active Substance: PREDNISONE
     Dosage: R-CHOP CYCLE 3
     Dates: start: 20180328
  6. METHOTREXATE. [Concomitant]
     Active Substance: METHOTREXATE
     Dosage: 740 MG
     Route: 042
     Dates: start: 20180321
  7. METHOTREXATE. [Concomitant]
     Active Substance: METHOTREXATE
     Dosage: 4500 MG
     Route: 042
     Dates: start: 20180409
  8. DOMPERIDONE [Concomitant]
     Active Substance: DOMPERIDONE
     Dosage: 10 MG, PRN
  9. METHOTREXATE. [Concomitant]
     Active Substance: METHOTREXATE
     Dosage: 2200 MG
     Route: 042
     Dates: start: 20180227
  10. DOXORUBICIN HCL [Suspect]
     Active Substance: DOXORUBICIN HYDROCHLORIDE
     Dosage: R-CHOP CYCLE 2
     Dates: start: 20180307
  11. DOXORUBICIN HCL [Suspect]
     Active Substance: DOXORUBICIN HYDROCHLORIDE
     Dosage: R-CHOP CYCLE 3
     Dates: start: 20180328
  12. VINCRISTINE SULFATE. [Suspect]
     Active Substance: VINCRISTINE SULFATE
     Dosage: R-CHOP CYCLE 6
     Dates: start: 20180530
  13. TRUXIMA [Suspect]
     Active Substance: RITUXIMAB-ABBS
     Dosage: 600 MILLIGRAM (CYCLE 6); D1 C6
     Route: 042
     Dates: start: 20180530
  14. TRUXIMA [Suspect]
     Active Substance: RITUXIMAB-ABBS
     Indication: DIFFUSE LARGE B-CELL LYMPHOMA
     Dosage: 600 MILLIGRAM (CYCLE 1); D1 C1
     Route: 042
     Dates: start: 20180215, end: 20200530
  15. PEGFILGRASTIM [Concomitant]
     Active Substance: PEGFILGRASTIM
     Dosage: 6 MILLIGRAM 24 HRS, FOLLOWING CHEMOTHERAPY
     Route: 058
     Dates: start: 20180215
  16. DOMPERIDONE [Concomitant]
     Active Substance: DOMPERIDONE
     Dosage: 10 MG (DAYS 5-10)
     Dates: start: 20180227
  17. DOXORUBICIN HCL [Suspect]
     Active Substance: DOXORUBICIN HYDROCHLORIDE
     Dosage: R-CHOP CYCLE 4
     Dates: start: 20180418
  18. CYCLOPHOSPHAMIDE. [Suspect]
     Active Substance: CYCLOPHOSPHAMIDE
     Dosage: R-CHOP CYCLE 3
     Dates: start: 20180328
  19. PREDNISONE. [Suspect]
     Active Substance: PREDNISONE
     Dosage: R-CHOP CYCLE 6
     Dates: start: 20180530
  20. TRUXIMA [Suspect]
     Active Substance: RITUXIMAB-ABBS
     Dosage: 600 MILLIGRAM (CYCLE 2); D1 C2
     Route: 042
     Dates: start: 20180307
  21. TRUXIMA [Suspect]
     Active Substance: RITUXIMAB-ABBS
     Dosage: 600 MILLIGRAM (CYCLE 4); D1 C4
     Route: 042
     Dates: start: 20180418
  22. METHOTREXATE. [Concomitant]
     Active Substance: METHOTREXATE
     Indication: PROPHYLAXIS
     Dosage: 360 MG
     Route: 042
     Dates: start: 20180227
  23. DOXORUBICIN HCL [Suspect]
     Active Substance: DOXORUBICIN HYDROCHLORIDE
     Dosage: R-CHOP CYCLE 5
     Dates: start: 20180509
  24. DOXORUBICIN HCL [Suspect]
     Active Substance: DOXORUBICIN HYDROCHLORIDE
     Dosage: R-CHOP CYCLE 6
     Dates: start: 20180530
  25. TRUXIMA [Suspect]
     Active Substance: RITUXIMAB-ABBS
     Dosage: 600 MILLIGRAM (CYCLE 5); D1 C5
     Route: 042
     Dates: start: 20180509
  26. PENTAMIDINE [Concomitant]
     Active Substance: PENTAMIDINE
     Dosage: UNK
     Dates: start: 20180216
  27. RANITIDINE. [Concomitant]
     Active Substance: RANITIDINE
     Dosage: 150 MG BD
     Dates: start: 20180227
  28. VINCRISTINE SULFATE. [Suspect]
     Active Substance: VINCRISTINE SULFATE
     Dosage: R-CHOP CYCLE 2
     Dates: start: 20180307
  29. VINCRISTINE SULFATE. [Suspect]
     Active Substance: VINCRISTINE SULFATE
     Dosage: R-CHOP CYCLE 3
     Dates: start: 20180328
  30. SEPTRIN [Suspect]
     Active Substance: SULFAMETHOXAZOLE\TRIMETHOPRIM
     Dosage: 480 MG, BD MON, WED AND FRI
     Dates: start: 20200612
  31. SEPTRIN [Suspect]
     Active Substance: SULFAMETHOXAZOLE\TRIMETHOPRIM
     Dosage: 480 MG, BD MON, WED AND FRI
     Dates: start: 20200619
  32. ALLOPURINOL. [Concomitant]
     Active Substance: ALLOPURINOL
     Dosage: 300 MG, DAILY
     Route: 048
  33. DOXORUBICIN HCL [Suspect]
     Active Substance: DOXORUBICIN HYDROCHLORIDE
     Dosage: R-CHOP  (STARTED) CYCLE 1
     Dates: start: 20180215
  34. VINCRISTINE SULFATE. [Suspect]
     Active Substance: VINCRISTINE SULFATE
     Dosage: R-CHOP (STARTED) CYCLE 1
     Dates: start: 20180215
  35. VINCRISTINE SULFATE. [Suspect]
     Active Substance: VINCRISTINE SULFATE
     Dosage: R-CHOP CYCLE 5
     Dates: start: 20180509
  36. CYCLOPHOSPHAMIDE. [Suspect]
     Active Substance: CYCLOPHOSPHAMIDE
     Dosage: R-CHOP STARTED (CYCLE 1)
     Dates: start: 20180215
  37. PREDNISONE. [Suspect]
     Active Substance: PREDNISONE
     Dosage: R-CHOP CYCLE 2
     Dates: start: 20180307
  38. PREDNISONE. [Suspect]
     Active Substance: PREDNISONE
     Dosage: R-CHOP CYCLE 4
     Dates: start: 20180418
  39. METHOTREXATE. [Concomitant]
     Active Substance: METHOTREXATE
     Dosage: 3 TIMES HIGH DOSE METHOTREXATE
  40. PREDNISONE. [Suspect]
     Active Substance: PREDNISONE
     Dosage: R-CHOP CYCLE 5
     Dates: start: 20180509
  41. SEPTRIN [Suspect]
     Active Substance: SULFAMETHOXAZOLE\TRIMETHOPRIM
     Dosage: 480 MG, BD MON, WED AND FRI
     Dates: start: 20200615
  42. SEPTRIN [Suspect]
     Active Substance: SULFAMETHOXAZOLE\TRIMETHOPRIM
     Dosage: 480 MG, BD MON, WED AND FRI
     Dates: start: 20200617
  43. ACICLOVIR [Concomitant]
     Active Substance: ACYCLOVIR
     Dosage: 400 MG, TDS
     Dates: start: 20180227
  44. COCODAMOL [Concomitant]
     Active Substance: ACETAMINOPHEN\CODEINE PHOSPHATE
     Dosage: 8/500 1-2 TABS QDS
  45. CYCLOPHOSPHAMIDE. [Suspect]
     Active Substance: CYCLOPHOSPHAMIDE
     Dosage: R-CHOP CYCLE 4
     Dates: start: 20180418
  46. CYCLOPHOSPHAMIDE. [Suspect]
     Active Substance: CYCLOPHOSPHAMIDE
     Dosage: R-CHOP CYCLE 6
     Dates: start: 20180530
  47. SEPTRIN [Suspect]
     Active Substance: SULFAMETHOXAZOLE\TRIMETHOPRIM
     Indication: PROPHYLAXIS
     Dosage: 480 MG, BD MON, WED AND FRI
     Dates: start: 20200610
  48. TRUXIMA [Suspect]
     Active Substance: RITUXIMAB-ABBS
     Dosage: 600 MILLIGRAM (CYCLE 3); D1 C3
     Route: 042
     Dates: start: 20180328
  49. TRUXIMA [Suspect]
     Active Substance: RITUXIMAB-ABBS
     Dosage: 550 MG (WT: 58.1 KG), EVERY 21 DAYS (CYCLE 1 OF SECOND LINE TREATMENT)
     Route: 042
     Dates: start: 20200610, end: 20200701
  50. FLUCONAZOLE. [Concomitant]
     Active Substance: FLUCONAZOLE
     Dosage: 50 MG, OD
  51. METHOTREXATE. [Concomitant]
     Active Substance: METHOTREXATE
     Dosage: 3000 MG
     Route: 042
     Dates: start: 20180321
  52. METHOTREXATE. [Concomitant]
     Active Substance: METHOTREXATE
     Dosage: 740 MG
     Route: 042
     Dates: start: 20180409

REACTIONS (4)
  - Neutropenic sepsis [Recovered/Resolved]
  - Vomiting [Recovered/Resolved]
  - Infusion related reaction [Recovered/Resolved]
  - Headache [Recovered/Resolved]

NARRATIVE: CASE EVENT DATE: 20180222
